FAERS Safety Report 7995957-6 (Version None)
Quarter: 2011Q4

REPORT INFORMATION
  Report Type: 
  Country: None (occurrence: None)
  Receive Date: 20111220
  Receipt Date: 20111213
  Transmission Date: 20120403
  Serious: Yes (Other)
  Sender: FDA-Public Use
  Company Number: US-PFIZER INC-2011303597

PATIENT
  Sex: Female
  Weight: 75.6 kg

DRUGS (11)
  1. BLINDED THERAPY [Suspect]
     Dosage: 2DF, BID
     Route: 048
     Dates: start: 20101110, end: 20101214
  2. CLONAZEPAM [Concomitant]
     Dosage: UNK
     Dates: start: 20050218
  3. BLINDED THERAPY [Suspect]
     Dosage: 2DF, BID
     Route: 048
     Dates: start: 20101215
  4. LETAIRIS [Suspect]
     Indication: PULMONARY ARTERIAL HYPERTENSION
     Dosage: 5 MG, 1X/DAY
     Route: 048
     Dates: start: 20111105, end: 20111121
  5. TORSEMIDE [Concomitant]
     Dosage: UNK
     Dates: start: 20071127
  6. METOLAZONE [Concomitant]
     Dosage: UNK
     Dates: start: 20071019
  7. PAROXETINE [Concomitant]
     Dosage: UNK
     Dates: start: 20050218
  8. POTASSIUM CHLORIDE [Concomitant]
     Dosage: UNK
     Dates: start: 20110331
  9. REVATIO [Suspect]
     Indication: PULMONARY ARTERIAL HYPERTENSION
  10. OXYGEN [Concomitant]
     Dosage: UNK
     Dates: start: 20050422
  11. BLINDED THERAPY [Suspect]
     Indication: PULMONARY ARTERIAL HYPERTENSION
     Dosage: 2DF, BID
     Route: 048
     Dates: start: 20100824, end: 20100922

REACTIONS (2)
  - ASPARTATE AMINOTRANSFERASE INCREASED [None]
  - ALANINE AMINOTRANSFERASE INCREASED [None]
